FAERS Safety Report 5689273-5 (Version None)
Quarter: 2008Q1

REPORT INFORMATION
  Report Type: 
  Country: None (occurrence: None)
  Receive Date: 20080331
  Receipt Date: 20080318
  Transmission Date: 20080703
  Serious: Yes (Other)
  Sender: FDA-Public Use
  Company Number: US-ELI_LILLY_AND_COMPANY-US200803004151

PATIENT
  Sex: Female

DRUGS (2)
  1. FORTEO [Suspect]
     Indication: OSTEOPOROSIS
     Dosage: UNK, EACH EVENING
     Route: 058
     Dates: start: 20080306, end: 20080301
  2. FORTEO [Suspect]
     Dosage: UNK, EACH MORNING
     Route: 058
     Dates: start: 20080301

REACTIONS (8)
  - BONE PAIN [None]
  - FATIGUE [None]
  - HEADACHE [None]
  - INSOMNIA [None]
  - LOSS OF CONSCIOUSNESS [None]
  - ORAL PAIN [None]
  - SWOLLEN TONGUE [None]
  - SYNCOPE [None]
